FAERS Safety Report 8199347-5 (Version None)
Quarter: 2012Q1

REPORT INFORMATION
  Report Type: 
  Country: None (occurrence: None)
  Receive Date: 20120309
  Receipt Date: 20120307
  Transmission Date: 20120608
  Serious: Yes (Other)
  Sender: FDA-Public Use
  Company Number: JP-PFIZER INC-2012046365

PATIENT
  Age: 75 Year
  Sex: Male

DRUGS (3)
  1. HYTHIOL [Concomitant]
  2. JUVELA [Concomitant]
  3. TOLTERODINE TARTRATE [Suspect]
     Indication: POLLAKIURIA
     Dosage: 4 MG, 1X/DAY
     Route: 048
     Dates: start: 20120116, end: 20120222

REACTIONS (2)
  - VISUAL ACUITY REDUCED [None]
  - VISION BLURRED [None]
